FAERS Safety Report 12088512 (Version 1)
Quarter: 2016Q1

REPORT INFORMATION
  Report Type: Spontaneous
  Country: US (occurrence: US)
  Receive Date: 20160218
  Receipt Date: 20160218
  Transmission Date: 20160526
  Serious: No
  Sender: FDA-Public Use
  Company Number: US-GLENMARK PHARMACEUTICALS INC, USA.-2015GMK019862

PATIENT
  Age: 55 Year
  Sex: Female

DRUGS (10)
  1. GENTAMICIN. [Concomitant]
     Active Substance: GENTAMICIN
     Indication: STAPHYLOCOCCAL INFECTION
     Dosage: UNK, TID
     Route: 065
  2. SULFAMETHOXAZOLE AND TRIMETHOPRIM [Suspect]
     Active Substance: SULFAMETHOXAZOLE\TRIMETHOPRIM
     Indication: STAPHYLOCOCCAL INFECTION
  3. LINEZOLID. [Suspect]
     Active Substance: LINEZOLID
     Indication: OTORRHOEA
     Dosage: 600 MG, TWICE DAILY
     Route: 065
  4. GENTAMICIN. [Concomitant]
     Active Substance: GENTAMICIN
     Indication: OTORRHOEA
     Dosage: UNK, TID
     Route: 065
  5. SULFACETAMIDE. [Concomitant]
     Active Substance: SULFACETAMIDE
     Indication: STAPHYLOCOCCAL INFECTION
  6. TOBRAMYCIN AND DEXAMETHASONE [Concomitant]
     Active Substance: DEXAMETHASONE\TOBRAMYCIN
     Indication: OTORRHOEA
     Dosage: UNK
     Route: 065
  7. LINEZOLID. [Suspect]
     Active Substance: LINEZOLID
     Indication: STAPHYLOCOCCAL INFECTION
     Dosage: 600 MG, TWICE DAILY
     Route: 065
  8. LEVOFLOXACIN. [Suspect]
     Active Substance: LEVOFLOXACIN
     Indication: OTORRHOEA
     Dosage: 750 MG, DAILY
     Route: 065
  9. SULFAMETHOXAZOLE AND TRIMETHOPRIM [Suspect]
     Active Substance: SULFAMETHOXAZOLE\TRIMETHOPRIM
     Indication: OTORRHOEA
     Dosage: 160 MG/800 MG TWICE DAILY FOR 2 WEEKS
     Route: 065
  10. SULFACETAMIDE. [Concomitant]
     Active Substance: SULFACETAMIDE
     Indication: OTORRHOEA
     Dosage: UNK

REACTIONS (2)
  - Off label use [Unknown]
  - Drug resistance [Unknown]
